FAERS Safety Report 6282362-6 (Version None)
Quarter: 2009Q3

REPORT INFORMATION
  Report Type: 
  Country: None (occurrence: None)
  Receive Date: 20090724
  Receipt Date: 20090721
  Transmission Date: 20100115
  Serious: Yes (Death)
  Sender: FDA-Public Use
  Company Number: JP-JNJFOC-20090706855

PATIENT
  Sex: Male
  Weight: 45 kg

DRUGS (14)
  1. DUROTEP MT [Suspect]
     Indication: CANCER PAIN
     Route: 062
  2. FAMOTIDINE D [Concomitant]
     Route: 048
  3. OPSO [Concomitant]
     Indication: CANCER PAIN
     Route: 048
  4. INTEBAN [Concomitant]
     Route: 054
  5. INTEBAN [Concomitant]
     Route: 054
  6. INTEBAN [Concomitant]
     Indication: CANCER PAIN
     Route: 054
  7. ARTIST [Concomitant]
     Indication: HYPERTENSION
     Route: 048
  8. BLOPRESS [Concomitant]
     Indication: HYPERTENSION
     Route: 048
  9. LIVALO [Concomitant]
     Indication: HYPERLIPIDAEMIA
     Route: 048
  10. LOXONIN [Concomitant]
     Indication: ANALGESIC THERAPY
     Route: 048
  11. MUCOSTA [Concomitant]
     Indication: PROPHYLAXIS
     Route: 048
  12. LUPRAC [Concomitant]
     Indication: CARDIAC FAILURE CHRONIC
     Route: 048
  13. FRANDOL [Concomitant]
     Indication: ACUTE CORONARY SYNDROME
     Route: 062
  14. DIGOSIN [Concomitant]
     Indication: ACUTE CORONARY SYNDROME
     Route: 042

REACTIONS (1)
  - LUNG NEOPLASM MALIGNANT [None]
